FAERS Safety Report 16462926 (Version 2)
Quarter: 2019Q3

REPORT INFORMATION
  Report Type: Spontaneous
  Country: DK (occurrence: DK)
  Receive Date: 20190621
  Receipt Date: 20190710
  Transmission Date: 20191004
  Serious: Yes (Death)
  Sender: FDA-Public Use
  Company Number: DK-TEVA-2018-DK-874888

PATIENT

DRUGS (1)
  1. METHOTREXATE. [Suspect]
     Active Substance: METHOTREXATE
     Indication: RHEUMATOID ARTHRITIS
     Dosage: 2.5 MILLIGRAM DAILY; GIVEN 7.5 MG ONCE WEEKLY INSTEAD
     Route: 048

REACTIONS (1)
  - Inappropriate schedule of product administration [Fatal]

NARRATIVE: CASE EVENT DATE: 2001
